FAERS Safety Report 10640227 (Version 2)
Quarter: 2015Q1

REPORT INFORMATION
  Report Type: Spontaneous
  Country: MW (occurrence: None)
  Receive Date: 20141205
  Receipt Date: 20150212
  Transmission Date: 20150720
  Serious: Yes (Hospitalization)
  Sender: FDA-Public Use
  Company Number: 2014HINOTH1036

PATIENT
  Age: 35 Week
  Sex: Male

DRUGS (6)
  1. EFAVIRENZ (EFAVIRENZ) UNKNOWN [Suspect]
     Active Substance: EFAVIRENZ
     Indication: HIV INFECTION
     Route: 064
     Dates: start: 20110608
  2. LOPINAVIR+RITONAVIR (KALETRA?, ALUVIA?, LPV/R) (LOPINAVIR+RITONAVIR (KALETRA?, ALUVIA?, LPV/R)) TABLET [Concomitant]
  3. RITONAVIR (NORVIR?, RTV) (RITONAVIR (NORVIR?, RTV)) [Concomitant]
  4. LAMIVUDINE+ZIDOVUDINE (COMBIVIR?, ZDV+3TC) (LAMIVUDINE+ZIDOVUDINE (COMBIVIR?, ZDV+3TC)) [Concomitant]
  5. TENOFOVIR DISOPROXIL FUMARATE+EMTRICITABINE (TRUVADA?, ND) (TENOFOVIR DISOPROXIL FUMARATE+EMTRICITABINE(TRUVADA, TVD) [Concomitant]
  6. ATAZANAVIR SULFATE (REYATAZ?, ATV) (ATAZANAVIR SULFATE (REYATAZ?, ATV)) [Concomitant]

REACTIONS (3)
  - Accessory auricle [None]
  - Premature baby [None]
  - Foetal exposure during pregnancy [None]
